APPROVED DRUG PRODUCT: CEFTRIAXONE
Active Ingredient: CEFTRIAXONE SODIUM
Strength: EQ 2GM BASE/VIAL
Dosage Form/Route: INJECTABLE;INTRAMUSCULAR, INTRAVENOUS
Application: A065391 | Product #003 | TE Code: AP
Applicant: WOCKHARDT BIO AG
Approved: Apr 12, 2007 | RLD: No | RS: No | Type: RX